FAERS Safety Report 18593204 (Version 1)
Quarter: 2020Q4

REPORT INFORMATION
  Report Type: Report from Study
  Country: RO (occurrence: RO)
  Receive Date: 20201208
  Receipt Date: 20201208
  Transmission Date: 20210114
  Serious: Yes (Hospitalization, Other)
  Sender: FDA-Public Use
  Company Number: RO-TAKEDA-2020TUS055923

PATIENT
  Age: 65 Year
  Sex: Male

DRUGS (9)
  1. GABARAN [Concomitant]
     Active Substance: GABAPENTIN
     Indication: PAIN
     Dosage: UNK
     Route: 065
     Dates: start: 202001
  2. OMERAN [Concomitant]
     Dosage: UNK
     Route: 065
     Dates: start: 202001
  3. FOCUS [Concomitant]
     Dosage: UNK
     Route: 065
  4. DEXAMETHASONE. [Suspect]
     Active Substance: DEXAMETHASONE
     Indication: PLASMA CELL MYELOMA
     Dosage: 20 MILLIGRAM
     Route: 065
     Dates: start: 202001
  5. OMACOR [Concomitant]
     Active Substance: OMEGA-3-ACID ETHYL ESTERS
     Indication: LIPIDS ABNORMAL
     Dosage: UNK
     Route: 065
  6. FUROSEMIDE. [Concomitant]
     Active Substance: FUROSEMIDE
     Dosage: UNK
     Route: 065
  7. IXAZOMIB [Suspect]
     Active Substance: IXAZOMIB
     Indication: PLASMA CELL MYELOMA
     Dosage: 3 MILLIGRAM
     Route: 048
     Dates: start: 202001
  8. LENALIDOMIDE [Suspect]
     Active Substance: LENALIDOMIDE
     Indication: PLASMA CELL MYELOMA
     Dosage: 5 MILLIGRAM
     Route: 065
     Dates: start: 202001
  9. BONEFOS [Concomitant]
     Active Substance: CLODRONATE DISODIUM
     Indication: BONE DISORDER
     Dosage: UNK
     Route: 065
     Dates: start: 202001

REACTIONS (3)
  - COVID-19 [Recovered/Resolved]
  - Lower respiratory tract infection [Recovered/Resolved]
  - Pruritus [Recovered/Resolved]
